FAERS Safety Report 25883901 (Version 1)
Quarter: 2025Q4

REPORT INFORMATION
  Report Type: Spontaneous
  Country: US (occurrence: US)
  Receive Date: 20251006
  Receipt Date: 20251006
  Transmission Date: 20260118
  Serious: Yes (Other)
  Sender: BAYER HEALTHCARE LLC
  Company Number: US-BAYER-2025A129067

PATIENT
  Age: 42 Year
  Sex: Female

DRUGS (1)
  1. BAYER LOW DOSE [Suspect]
     Active Substance: ASPIRIN
     Indication: Pre-eclampsia
     Dosage: UNK

REACTIONS (6)
  - Abdominal wall haematoma [None]
  - Haemorrhage [None]
  - Anaemia [None]
  - Maternal exposure during pregnancy [None]
  - Product use in unapproved indication [None]
  - Product prescribing issue [None]
